FAERS Safety Report 12860677 (Version 1)
Quarter: 2016Q4

REPORT INFORMATION
  Report Type: Spontaneous
  Country: US (occurrence: US)
  Receive Date: 20161019
  Receipt Date: 20161019
  Transmission Date: 20170207
  Serious: Yes (Other)
  Sender: FDA-Public Use
  Company Number: US-MALLINCKRODT-T201605131

PATIENT
  Age: 64 Year
  Sex: Female
  Weight: 101 kg

DRUGS (6)
  1. PROPOFOL. [Concomitant]
     Active Substance: PROPOFOL
  2. OFIRMEV [Suspect]
     Active Substance: ACETAMINOPHEN
     Indication: PRODUCT USED FOR UNKNOWN INDICATION
     Dosage: 500 MG, SINGLE
     Route: 042
     Dates: start: 20161012, end: 20161012
  3. VANCOMYCIN [Concomitant]
     Active Substance: VANCOMYCIN
  4. FENTANYL. [Concomitant]
     Active Substance: FENTANYL
  5. OFIRMEV [Suspect]
     Active Substance: ACETAMINOPHEN
     Dosage: 100-250 MG, SINGLE DOSE
     Route: 042
     Dates: start: 20161012, end: 20161012
  6. SUCCINYLCHOLINE [Concomitant]
     Active Substance: SUCCINYLCHOLINE

REACTIONS (4)
  - Respiratory tract oedema [Unknown]
  - Laryngospasm [Unknown]
  - Wheezing [Unknown]
  - Hypotension [Unknown]

NARRATIVE: CASE EVENT DATE: 20161012
